FAERS Safety Report 5816817-2 (Version None)
Quarter: 2008Q3

REPORT INFORMATION
  Report Type: 
  Country: None (occurrence: None)
  Receive Date: 20080721
  Receipt Date: 20080708
  Transmission Date: 20090109
  Serious: Yes (Other)
  Sender: FDA-Public Use
  Company Number: FR-GENENTECH-261027

PATIENT
  Age: 60 Year
  Sex: Female

DRUGS (12)
  1. HERCEPTIN [Suspect]
     Indication: BREAST CANCER METASTATIC
     Dosage: UNK
     Route: 042
     Dates: start: 20030401
  2. STEDIRIL [Concomitant]
     Indication: DRUG USE FOR UNKNOWN INDICATION
     Dosage: UNK
     Dates: start: 19700101, end: 19730101
  3. LEVOTHYROXINE SODIUM [Concomitant]
     Indication: DRUG USE FOR UNKNOWN INDICATION
     Dosage: UNK
     Dates: start: 20070101
  4. GINKOR [Concomitant]
     Indication: DRUG USE FOR UNKNOWN INDICATION
     Dosage: UNK
  5. MOPRAL [Concomitant]
     Indication: DRUG USE FOR UNKNOWN INDICATION
     Dosage: UNK
  6. LEGALON [Concomitant]
     Indication: DRUG USE FOR UNKNOWN INDICATION
     Dosage: UNK
  7. ACTOS [Concomitant]
     Indication: DRUG USE FOR UNKNOWN INDICATION
     Dosage: UNK
     Dates: start: 20040101
  8. DIAMICRON [Concomitant]
     Indication: DRUG USE FOR UNKNOWN INDICATION
     Dosage: UNK
     Dates: start: 19880101
  9. NAVELBINE [Concomitant]
     Indication: DRUG USE FOR UNKNOWN INDICATION
  10. TAXOL [Concomitant]
     Indication: DRUG USE FOR UNKNOWN INDICATION
  11. FASLODEX [Concomitant]
     Indication: DRUG USE FOR UNKNOWN INDICATION
  12. GEMZAR [Concomitant]
     Indication: DRUG USE FOR UNKNOWN INDICATION

REACTIONS (2)
  - DISEASE PROGRESSION [None]
  - VOCAL CORD PARALYSIS [None]
